FAERS Safety Report 19858764 (Version 1)
Quarter: 2021Q3

REPORT INFORMATION
  Report Type: Spontaneous
  Country: US (occurrence: US)
  Receive Date: 20210921
  Receipt Date: 20210921
  Transmission Date: 20211014
  Serious: No
  Sender: FDA-Public Use
  Company Number: US-AUROBINDO-AUR-APL-2021-014933

PATIENT
  Age: 64 Year
  Sex: Male
  Weight: 90.7 kg

DRUGS (2)
  1. ALENDRONATE SODIUM TABLETS USP 70MG [Suspect]
     Active Substance: ALENDRONATE SODIUM
     Indication: OSTEOPOROSIS
  2. ALENDRONATE SODIUM TABLETS USP 70MG [Suspect]
     Active Substance: ALENDRONATE SODIUM
     Indication: BONE LOSS
     Dosage: 1 DOSAGE FORM, EVERY WEEK
     Route: 048
     Dates: start: 20210328, end: 20210328

REACTIONS (2)
  - Gastrointestinal injury [Not Recovered/Not Resolved]
  - Illness [Not Recovered/Not Resolved]

NARRATIVE: CASE EVENT DATE: 20210328
